FAERS Safety Report 11913149 (Version 2)
Quarter: 2016Q2

REPORT INFORMATION
  Report Type: Spontaneous
  Country: US (occurrence: US)
  Receive Date: 20160113
  Receipt Date: 20160523
  Transmission Date: 20160815
  Serious: Yes (Death, Hospitalization, Other)
  Sender: FDA-Public Use
  Company Number: US-009507513-1601USA003514

PATIENT
  Sex: Female
  Weight: 111.11 kg

DRUGS (4)
  1. JANUMET [Suspect]
     Active Substance: METFORMIN HYDROCHLORIDE\SITAGLIPTIN PHOSPHATE
     Indication: TYPE 2 DIABETES MELLITUS
     Dosage: 50-1000 DAILY
     Route: 048
     Dates: start: 20120801, end: 20131106
  2. JANUVIA [Suspect]
     Active Substance: SITAGLIPTIN PHOSPHATE
     Indication: TYPE 2 DIABETES MELLITUS
     Dosage: 100 MG, QD
     Route: 048
     Dates: start: 20120301, end: 20120801
  3. VITAMINS (UNSPECIFIED) [Concomitant]
     Active Substance: VITAMINS
     Indication: ROUTINE HEALTH MAINTENANCE
     Dosage: UNK
     Dates: start: 1970, end: 201405
  4. JANUMET [Suspect]
     Active Substance: METFORMIN HYDROCHLORIDE\SITAGLIPTIN PHOSPHATE
     Dosage: 50-1000MG TWICE DAILY
     Route: 048
     Dates: start: 20120917, end: 20130101

REACTIONS (17)
  - Metastases to liver [Unknown]
  - Anaemia of chronic disease [Unknown]
  - Death [Fatal]
  - Pancreatitis [Unknown]
  - Umbilical hernia [Unknown]
  - Nephrolithiasis [Unknown]
  - Gastric polyps [Unknown]
  - Pancreatic carcinoma metastatic [Unknown]
  - Drug administration error [Unknown]
  - Diabetes mellitus inadequate control [Unknown]
  - Dysgeusia [Unknown]
  - Hepatic steatosis [Unknown]
  - Cholelithiasis [Unknown]
  - Acute prerenal failure [Recovering/Resolving]
  - International normalised ratio increased [Unknown]
  - Dehydration [Unknown]
  - Hyponatraemia [Unknown]

NARRATIVE: CASE EVENT DATE: 20140113
